FAERS Safety Report 5915788-8 (Version None)
Quarter: 2008Q4

REPORT INFORMATION
  Report Type: 
  Country: None (occurrence: None)
  Receive Date: 20081010
  Receipt Date: 20080929
  Transmission Date: 20090506
  Serious: Yes (Other)
  Sender: FDA-Public Use
  Company Number: UG-B.I. PHARMACEUTICALS,INC./RIDGEFIELD-2008-BP-15545BP

PATIENT
  Sex: Male

DRUGS (1)
  1. TRIOMUNE TABLETS [Suspect]
     Indication: HIV INFECTION
     Dates: start: 20060101

REACTIONS (4)
  - BLEPHAROSPASM [None]
  - HERPES ZOSTER OPHTHALMIC [None]
  - PARALYSIS [None]
  - RASH [None]
